FAERS Safety Report 15330507 (Version 1)
Quarter: 2018Q4

REPORT INFORMATION
  Report Type: Spontaneous
  Country: US (occurrence: US)
  Receive Date: 20180829
  Receipt Date: 20180829
  Transmission Date: 20190204
  Serious: No
  Sender: FDA-Public Use
  Company Number: US-SA-2018SA240641

PATIENT
  Sex: Male

DRUGS (1)
  1. GOLD BOND EXTRA STRENGTH [Suspect]
     Active Substance: MENTHOL
     Indication: PRURITUS
     Dosage: UNK

REACTIONS (1)
  - Therapeutic response unexpected [Unknown]
